FAERS Safety Report 17052036 (Version 1)
Quarter: 2019Q4

REPORT INFORMATION
  Report Type: Spontaneous
  Country: FR (occurrence: FR)
  Receive Date: 20191120
  Receipt Date: 20191120
  Transmission Date: 20200122
  Serious: Yes (Hospitalization)
  Sender: FDA-Public Use
  Company Number: FR-ACCORD-161048

PATIENT
  Age: 63 Year
  Sex: Female
  Weight: 64 kg

DRUGS (2)
  1. IRINOTECAN/IRINOTECAN HYDROCHLORIDE [Suspect]
     Active Substance: IRINOTECAN HYDROCHLORIDE
     Indication: NEUROENDOCRINE CARCINOMA
     Route: 041
     Dates: start: 20190909, end: 20190909
  2. FLUOROURACILE ACCORD [Suspect]
     Active Substance: FLUOROURACIL
     Indication: NEUROENDOCRINE CARCINOMA
     Dosage: 600MG+4000MG
     Route: 041
     Dates: start: 20190909, end: 20190910

REACTIONS (2)
  - Colitis [Recovered/Resolved]
  - Diarrhoea [Recovered/Resolved]

NARRATIVE: CASE EVENT DATE: 20190912
